FAERS Safety Report 6707104-9 (Version None)
Quarter: 2010Q2

REPORT INFORMATION
  Report Type: 
  Country: None (occurrence: None)
  Receive Date: 20100503
  Receipt Date: 20100428
  Transmission Date: 20101027
  Serious: Yes (Other)
  Sender: FDA-Public Use
  Company Number: A0857089A

PATIENT
  Age: 69 Year
  Sex: Female

DRUGS (6)
  1. VERAMYST [Suspect]
     Dosage: 4SPR PER DAY
     Route: 045
     Dates: start: 20100407, end: 20100427
  2. SPIRIVA [Concomitant]
  3. SYMBICORT [Concomitant]
  4. ALBUTEROL [Concomitant]
  5. COZAAR [Concomitant]
  6. VERAPAMIL [Concomitant]

REACTIONS (3)
  - OROPHARYNGEAL DISCOMFORT [None]
  - OROPHARYNGEAL PAIN [None]
  - PHARYNGEAL HAEMORRHAGE [None]
